FAERS Safety Report 4952786-5 (Version None)
Quarter: 2006Q1

REPORT INFORMATION
  Report Type: 
  Country: None (occurrence: None)
  Receive Date: 20060320
  Receipt Date: 20060306
  Transmission Date: 20060701
  Serious: Yes (Death)
  Sender: FDA-Public Use
  Company Number: 2006032869

PATIENT
  Sex: Male

DRUGS (1)
  1. VIAGRA [Suspect]
     Indication: ILL-DEFINED DISORDER
     Dosage: 200 MG

REACTIONS (2)
  - POOR QUALITY DRUG ADMINISTERED [None]
  - SELF-MEDICATION [None]
